FAERS Safety Report 20686016 (Version 1)
Quarter: 2022Q2

REPORT INFORMATION
  Report Type: Spontaneous
  Country: US (occurrence: US)
  Receive Date: 20220407
  Receipt Date: 20220407
  Transmission Date: 20220720
  Serious: No
  Sender: FDA-Public Use
  Company Number: US-JAZZ-2021-US-022603

PATIENT
  Sex: Female

DRUGS (10)
  1. SUNOSI [Suspect]
     Active Substance: SOLRIAMFETOL
     Indication: Narcolepsy
     Dosage: 150 MILLIGRAM, QD, EVERY MORNING
  2. SUNOSI [Suspect]
     Active Substance: SOLRIAMFETOL
     Indication: Cataplexy
  3. XYWAV [Suspect]
     Active Substance: CALCIUM OXYBATE\MAGNESIUM OXYBATE\POTASSIUM OXYBATE\SODIUM OXYBATE
     Indication: Narcolepsy
     Dosage: 4.5 MILLIGRAM, BID, TWICE NIGHTLY
     Route: 048
     Dates: start: 202101
  4. XYWAV [Suspect]
     Active Substance: CALCIUM OXYBATE\MAGNESIUM OXYBATE\POTASSIUM OXYBATE\SODIUM OXYBATE
     Indication: Cataplexy
  5. VITAMIN D3 [Concomitant]
     Active Substance: CHOLECALCIFEROL
     Indication: Product used for unknown indication
     Dosage: 400 UNIT TABLET,QD
     Dates: start: 20140901
  6. CALCIUM D [CALCIUM CARBONATE;CALCIUM CITRATE;COLECALCIFEROL] [Concomitant]
     Indication: Product used for unknown indication
     Dosage: UNK
     Dates: start: 20140901
  7. EPIPEN [Concomitant]
     Active Substance: EPINEPHRINE
     Indication: Product used for unknown indication
     Dosage: 0.3 MILLIGRAM
     Dates: start: 20151013
  8. VITAMIN B12 [Concomitant]
     Active Substance: CYANOCOBALAMIN
     Indication: Product used for unknown indication
     Dosage: UNK
     Dates: start: 20151013
  9. COLLAGEN TYPE II PLUS CURCUMIN [Concomitant]
     Indication: Product used for unknown indication
     Dosage: 1 AND 3 POWDER
     Dates: start: 20151015
  10. FISH OIL [Concomitant]
     Active Substance: FISH OIL
     Indication: Product used for unknown indication
     Dosage: 1000 MILLIGRAM
     Dates: start: 20151015

REACTIONS (2)
  - Neck pain [Unknown]
  - Heart rate increased [Unknown]
